FAERS Safety Report 5487441-9 (Version None)
Quarter: 2007Q4

REPORT INFORMATION
  Report Type: 
  Country: None (occurrence: None)
  Receive Date: 20071015
  Receipt Date: 20071005
  Transmission Date: 20080405
  Serious: Yes (Disabling)
  Sender: FDA-Public Use
  Company Number: GXKR2007BR08329

PATIENT
  Age: 49 Year
  Sex: Male

DRUGS (1)
  1. SULFAMETHOXAZOLE AND TRIMETHOPRIM [Suspect]
     Indication: ANTIFUNGAL PROPHYLAXIS

REACTIONS (10)
  - ANGLE CLOSURE GLAUCOMA [None]
  - ATROPHY OF GLOBE [None]
  - CATARACT [None]
  - CHOROIDAL EFFUSION [None]
  - CILIARY BODY DISORDER [None]
  - CONJUNCTIVAL OEDEMA [None]
  - CORNEAL OEDEMA [None]
  - EYE PAIN [None]
  - EYELID OEDEMA [None]
  - INTRAOCULAR PRESSURE DECREASED [None]
